FAERS Safety Report 8160794-9 (Version None)
Quarter: 2012Q1

REPORT INFORMATION
  Report Type: 
  Country: None (occurrence: None)
  Receive Date: 20120223
  Receipt Date: 20120217
  Transmission Date: 20120608
  Serious: Yes (Hospitalization, Other)
  Sender: FDA-Public Use
  Company Number: PHHY2010IE14082

PATIENT
  Sex: Female

DRUGS (6)
  1. CLOZARIL [Suspect]
     Dosage: 250 MG, DAILY
  2. ESCITALOPRAM [Concomitant]
     Indication: DEPRESSION
     Dosage: 20 MG, UNK
     Route: 048
  3. CLOZARIL [Suspect]
     Indication: SCHIZOPHRENIA
     Dates: start: 20091030, end: 20100304
  4. KWELLS [Concomitant]
     Indication: SALIVARY HYPERSECRETION
     Dosage: 300 MG, DAILY
     Route: 048
  5. CLOZARIL [Suspect]
     Route: 048
     Dates: start: 20100312
  6. LACTULOSE [Concomitant]
     Indication: CONSTIPATION
     Dosage: 60 ML, DAILY
     Route: 048

REACTIONS (9)
  - PSYCHOTIC DISORDER [None]
  - VIRAL INFECTION [None]
  - CONSTIPATION [None]
  - GENERAL PHYSICAL CONDITION ABNORMAL [None]
  - GASTRIC DISORDER [None]
  - VOMITING [None]
  - NEUTROPHIL COUNT DECREASED [None]
  - ABDOMINAL DISTENSION [None]
  - WHITE BLOOD CELL COUNT DECREASED [None]
